APPROVED DRUG PRODUCT: XELJANZ
Active Ingredient: TOFACITINIB CITRATE
Strength: EQ 5MG BASE
Dosage Form/Route: TABLET;ORAL
Application: N203214 | Product #001
Applicant: PF PRISM CV
Approved: Nov 6, 2012 | RLD: Yes | RS: No | Type: RX

PATENTS:
Patent RE41783 | Expires: Dec 8, 2025
Patent RE41783*PED | Expires: Jun 8, 2026

EXCLUSIVITY:
Code: PED | Date: Aug 21, 2028
Code: M-14 | Date: Feb 21, 2028